FAERS Safety Report 21274452 (Version 1)
Quarter: 2022Q3

REPORT INFORMATION
  Report Type: Spontaneous
  Country: US (occurrence: None)
  Receive Date: 20220830
  Receipt Date: 20220830
  Transmission Date: 20221027
  Serious: Yes (Other)
  Sender: FDA-Public Use
  Company Number: None

PATIENT
  Age: 8 Year
  Sex: Female
  Weight: 61.7 kg

DRUGS (1)
  1. LACOSAMIDE [Suspect]
     Active Substance: LACOSAMIDE
     Indication: Epilepsy
     Dosage: FREQUENCY : TWICE A DAY;?
     Route: 048
     Dates: start: 20191122, end: 20191123

REACTIONS (6)
  - Coating in mouth [None]
  - Oral mucosal exfoliation [None]
  - Tongue blistering [None]
  - Oral discomfort [None]
  - Eating disorder [None]
  - Product substitution issue [None]

NARRATIVE: CASE EVENT DATE: 20191122
